FAERS Safety Report 17848297 (Version 1)
Quarter: 2020Q2

REPORT INFORMATION
  Report Type: Spontaneous
  Country: CA (occurrence: CA)
  Receive Date: 20200602
  Receipt Date: 20200602
  Transmission Date: 20200714
  Serious: Yes (Hospitalization, Other)
  Sender: FDA-Public Use
  Company Number: CA-TEVA-2020-CA-1242621

PATIENT
  Age: 40 Year
  Sex: Male
  Weight: 80 kg

DRUGS (5)
  1. TRAMADOL HYDROCHLORIDE. [Suspect]
     Active Substance: TRAMADOL HYDROCHLORIDE
     Indication: ANALGESIC THERAPY
     Dosage: 50 MILLIGRAM DAILY;
     Route: 048
  2. HYDROMORPHONE HYDROCHLORIDE. [Suspect]
     Active Substance: HYDROMORPHONE HYDROCHLORIDE
     Indication: BREAKTHROUGH PAIN
     Route: 058
  3. PREGABALIN. [Suspect]
     Active Substance: PREGABALIN
     Indication: ANALGESIC THERAPY
     Dosage: 50 MILLIGRAM DAILY;
     Route: 048
  4. ACETAMINOPHEN. [Suspect]
     Active Substance: ACETAMINOPHEN
     Indication: ANALGESIC THERAPY
     Dosage: 3900 MILLIGRAM DAILY;
     Route: 048
  5. NORTRIPTYLINE [Suspect]
     Active Substance: NORTRIPTYLINE
     Indication: ANALGESIC THERAPY
     Dosage: 10 MILLIGRAM DAILY;
     Route: 048

REACTIONS (9)
  - Sedation [Unknown]
  - Infection [Unknown]
  - Drug hypersensitivity [Unknown]
  - Inadequate analgesia [Unknown]
  - Pain [Unknown]
  - Hallucination [Unknown]
  - Nausea [Unknown]
  - Treatment noncompliance [Unknown]
  - Vomiting [Unknown]
